FAERS Safety Report 12282556 (Version 1)
Quarter: 2016Q2

REPORT INFORMATION
  Report Type: Report from Study
  Country: NL (occurrence: NL)
  Receive Date: 20160419
  Receipt Date: 20160419
  Transmission Date: 20160815
  Serious: Yes (Hospitalization)
  Sender: FDA-Public Use
  Company Number: NL-AMGEN-NLDSL2016048950

PATIENT
  Age: 75 Year
  Sex: Male

DRUGS (1)
  1. NEULASTA [Suspect]
     Active Substance: PEGFILGRASTIM
     Indication: NEUTROPENIA
     Dosage: 10 MG/ML, Q3WK
     Route: 058

REACTIONS (3)
  - Fall [Unknown]
  - Blood glucose abnormal [Unknown]
  - Contusion [Unknown]

NARRATIVE: CASE EVENT DATE: 201604
